FAERS Safety Report 7373730-X (Version None)
Quarter: 2011Q1

REPORT INFORMATION
  Report Type: 
  Country: None (occurrence: None)
  Receive Date: 20110325
  Receipt Date: 20110311
  Transmission Date: 20110831
  Serious: Yes (Other)
  Sender: FDA-Public Use
  Company Number: US-JNJFOC-20110200820

PATIENT
  Sex: Male
  Weight: 74.84 kg

DRUGS (24)
  1. FENTANYL-100 [Suspect]
     Route: 062
  2. FENTANYL-100 [Suspect]
     Dosage: NDC: 0781-7241-55
     Route: 062
  3. FENTANYL-100 [Suspect]
     Dosage: NDC#: 0781-7242-55
     Route: 062
  4. FENTANYL-100 [Suspect]
     Dosage: NDC#: 0781-7242-55
     Route: 062
  5. FENTANYL-100 [Suspect]
     Dosage: NDC#: 0781-7242-55
     Route: 062
  6. FENTANYL-100 [Suspect]
     Indication: ARTHRALGIA
     Route: 062
  7. FENTANYL-100 [Suspect]
     Route: 062
  8. FENTANYL-100 [Suspect]
     Indication: BACK PAIN
     Route: 062
  9. FENTANYL-100 [Suspect]
     Dosage: NDC: 0781-7241-55
     Route: 062
  10. FENTANYL-100 [Suspect]
     Route: 062
  11. FENTANYL-100 [Suspect]
     Dosage: NDC#: 0781-7242-55
     Route: 062
  12. FLUOXETINE [Concomitant]
     Indication: DEPRESSION
     Dosage: 20 MG X 2/DAY
     Route: 048
  13. PERCOCET [Concomitant]
     Indication: BREAKTHROUGH PAIN
     Dosage: 5/325 MG
     Route: 048
  14. FENTANYL-100 [Suspect]
     Dosage: NDC: 0781-7243-55
     Route: 062
  15. FENTANYL-100 [Suspect]
     Dosage: NDC: 0781-7243-55
     Route: 062
  16. LISINOPRIL [Concomitant]
     Indication: HYPERTENSION
     Dosage: 20 MG X 2/DAY
     Route: 048
  17. FENTANYL-100 [Suspect]
     Indication: SCIATICA
     Route: 062
  18. FENTANYL-100 [Suspect]
     Dosage: NDC: 0781-7243-55
     Route: 062
  19. FENTANYL-100 [Suspect]
     Dosage: NDC: 0781-7241-55
     Route: 062
  20. FENTANYL-100 [Suspect]
     Dosage: NDC: 0781-7241-55
     Route: 062
  21. FENTANYL-100 [Suspect]
     Dosage: NDC: 0781-7243-55
     Route: 062
  22. FENTANYL-100 [Suspect]
     Indication: PAIN IN EXTREMITY
     Route: 062
  23. FENTANYL-100 [Suspect]
     Route: 062
  24. FLUOXETINE [Concomitant]
     Indication: ANXIETY
     Dosage: 20 MG X 2/DAY
     Route: 048

REACTIONS (18)
  - DRUG ADMINISTERED AT INAPPROPRIATE SITE [None]
  - RESTLESSNESS [None]
  - FEELING ABNORMAL [None]
  - THERAPEUTIC RESPONSE DECREASED [None]
  - EUPHORIC MOOD [None]
  - HALLUCINATION [None]
  - INAPPROPRIATE SCHEDULE OF DRUG ADMINISTRATION [None]
  - DIPLOPIA [None]
  - HYPOAESTHESIA [None]
  - INSOMNIA [None]
  - DRUG EFFECT INCREASED [None]
  - PRODUCT ADHESION ISSUE [None]
  - FEELING OF RELAXATION [None]
  - WRONG TECHNIQUE IN DRUG USAGE PROCESS [None]
  - CHEST PAIN [None]
  - DRUG INEFFECTIVE [None]
  - PAIN IN EXTREMITY [None]
  - ILLUSION [None]
